FAERS Safety Report 13373169 (Version 2)
Quarter: 2017Q2

REPORT INFORMATION
  Report Type: Spontaneous
  Country: US (occurrence: US)
  Receive Date: 20170327
  Receipt Date: 20170418
  Transmission Date: 20170830
  Serious: No
  Sender: FDA-Public Use
  Company Number: US-GLAXOSMITHKLINE-US2017042475

PATIENT
  Age: 75 Year
  Sex: Female

DRUGS (1)
  1. TRANSDERM SCOP [Suspect]
     Active Substance: SCOPOLAMINE
     Indication: ILL-DEFINED DISORDER
     Dosage: UNK

REACTIONS (6)
  - Dry skin [Unknown]
  - Scab [Unknown]
  - Pain of skin [Unknown]
  - Product quality issue [Unknown]
  - Erythema [Unknown]
  - Off label use [Unknown]
